FAERS Safety Report 10434947 (Version 1)
Quarter: 2014Q3

REPORT INFORMATION
  Report Type: Spontaneous
  Country: US (occurrence: None)
  Receive Date: 20140815
  Receipt Date: 20140815
  Transmission Date: 20150326
  Serious: No
  Sender: FDA-Public Use
  Company Number: 2014TUS004181

PATIENT
  Age: 41 Year
  Sex: Female
  Weight: 108.8 kg

DRUGS (2)
  1. BRILINTA [Suspect]
     Active Substance: TICAGRELOR
     Indication: PRODUCT USED FOR UNKNOWN INDICATION
  2. BRINTELLIX [Suspect]
     Active Substance: VORTIOXETINE HYDROBROMIDE
     Indication: MAJOR DEPRESSION
     Route: 048
     Dates: start: 20140509, end: 20140514

REACTIONS (3)
  - Drug dispensing error [None]
  - Product name confusion [None]
  - No adverse event [None]

NARRATIVE: CASE EVENT DATE: 20140509
